FAERS Safety Report 21556845 (Version 1)
Quarter: 2022Q4

REPORT INFORMATION
  Report Type: Spontaneous
  Country: US (occurrence: None)
  Receive Date: 20221103
  Receipt Date: 20221103
  Transmission Date: 20230113
  Serious: No
  Sender: FDA-Public Use
  Company Number: None

PATIENT
  Age: 56 Year
  Sex: Female
  Weight: 65.0 kg

DRUGS (5)
  1. CAPECITABINE [Suspect]
     Active Substance: CAPECITABINE
     Indication: Colon cancer
     Dosage: 1500MG TWICE A DAY ORAL?
     Route: 048
     Dates: start: 20220714, end: 20221103
  2. EMLA [Concomitant]
     Active Substance: LIDOCAINE\PRILOCAINE
  3. NYSTATIN [Concomitant]
     Active Substance: NYSTATIN
  4. PEPCID [Concomitant]
     Active Substance: FAMOTIDINE
  5. PROCHLORPERAZINE MALEATE [Concomitant]
     Active Substance: PROCHLORPERAZINE MALEATE

REACTIONS (1)
  - Disease progression [None]
